FAERS Safety Report 14977281 (Version 2)
Quarter: 2018Q2

REPORT INFORMATION
  Report Type: Spontaneous
  Country: JP (occurrence: JP)
  Receive Date: 20180606
  Receipt Date: 20180619
  Transmission Date: 20180711
  Serious: Yes (Hospitalization, Other)
  Sender: FDA-Public Use
  Company Number: JP-TAKEDA-2018TJP014720

PATIENT
  Age: 91 Year
  Sex: Male

DRUGS (1)
  1. TAKEPRON OD TABLETS 30 [Suspect]
     Active Substance: LANSOPRAZOLE
     Indication: GASTROOESOPHAGEAL REFLUX DISEASE
     Dosage: 30 MG, UNK
     Route: 048

REACTIONS (1)
  - Cerebral infarction [Recovered/Resolved]
